FAERS Safety Report 26170326 (Version 1)
Quarter: 2025Q4

REPORT INFORMATION
  Report Type: Spontaneous
  Country: US (occurrence: None)
  Receive Date: 20251217
  Receipt Date: 20251217
  Transmission Date: 20260117
  Serious: Yes (Death, Hospitalization)
  Sender: FDA-CTU
  Company Number: None

PATIENT
  Age: 80 Year
  Sex: Male
  Weight: 64 kg

DRUGS (2)
  1. APIXABAN [Suspect]
     Active Substance: APIXABAN
     Indication: Cerebrovascular accident prophylaxis
     Dosage: FREQUENCY : TWICE A DAY;
     Route: 048
     Dates: start: 20220929, end: 20250706
  2. ASPIRIN 81MG ENTERIC COATED LOW STRENGTH ASPIRIN REGIMEN [Suspect]
     Active Substance: ASPIRIN
     Dates: start: 20240723, end: 20250706

REACTIONS (7)
  - Ischaemic stroke [None]
  - Dyspnoea [None]
  - Wheezing [None]
  - Dysphagia [None]
  - Weight decreased [None]
  - Pulmonary mass [None]
  - Systolic dysfunction [None]

NARRATIVE: CASE EVENT DATE: 20250703
